FAERS Safety Report 6617115-X (Version None)
Quarter: 2010Q1

REPORT INFORMATION
  Report Type: 
  Country: None (occurrence: None)
  Receive Date: 20100307
  Receipt Date: 20090211
  Transmission Date: 20100710
  Serious: No
  Sender: FDA-Public Use
  Company Number: US-BAYER-200816510NA

PATIENT
  Sex: Male

DRUGS (9)
  1. MAGNEVIST [Suspect]
     Indication: NUCLEAR MAGNETIC RESONANCE IMAGING
     Route: 042
     Dates: start: 19991109, end: 19991109
  2. MAGNEVIST [Suspect]
     Route: 042
     Dates: start: 20041201, end: 20041201
  3. OMNISCAN [Suspect]
     Indication: NUCLEAR MAGNETIC RESONANCE IMAGING
     Route: 042
     Dates: start: 19991109, end: 19991109
  4. OMNISCAN [Suspect]
     Route: 042
     Dates: start: 20041201, end: 20041201
  5. OPTIMARK [Suspect]
     Indication: NUCLEAR MAGNETIC RESONANCE IMAGING
     Route: 042
     Dates: start: 19991109, end: 19991109
  6. OPTIMARK [Suspect]
     Route: 042
     Dates: start: 20041201, end: 20041201
  7. MULTIHANCE [Suspect]
     Indication: NUCLEAR MAGNETIC RESONANCE IMAGING
     Route: 042
     Dates: start: 19991109, end: 19991109
  8. MULTIHANCE [Suspect]
     Route: 042
     Dates: start: 20041201, end: 20041201
  9. PROHANCE [Suspect]
     Indication: NUCLEAR MAGNETIC RESONANCE IMAGING

REACTIONS (7)
  - FIBROSIS [None]
  - INJURY [None]
  - NEPHROGENIC SYSTEMIC FIBROSIS [None]
  - PAIN [None]
  - PHYSICAL DISABILITY [None]
  - QUALITY OF LIFE DECREASED [None]
  - SCAR [None]
